FAERS Safety Report 12431701 (Version 1)
Quarter: 2016Q2

REPORT INFORMATION
  Report Type: Spontaneous
  Country: US (occurrence: None)
  Receive Date: 20160602
  Receipt Date: 20160602
  Transmission Date: 20160815
  Serious: No
  Sender: FDA-Public Use
  Company Number: None

PATIENT
  Age: 47 Year
  Sex: Female
  Weight: 68.04 kg

DRUGS (3)
  1. SYNTHROID [Concomitant]
     Active Substance: LEVOTHYROXINE SODIUM
  2. LATANOPROST OPTHALMIC SOLUTION, 125 MCG GREENSTONE LLC [Suspect]
     Active Substance: LATANOPROST
     Indication: GLAUCOMA
     Dosage: 1 BOTTLE AT BEDTIME INTO THE EYE
     Route: 031
     Dates: start: 20160524, end: 20160524
  3. CLARITIN [Concomitant]
     Active Substance: LORATADINE

REACTIONS (2)
  - Eye pruritus [None]
  - Dry eye [None]

NARRATIVE: CASE EVENT DATE: 20160524
